FAERS Safety Report 6012223-9 (Version None)
Quarter: 2008Q4

REPORT INFORMATION
  Report Type: 
  Country: None (occurrence: None)
  Receive Date: 20081218
  Receipt Date: 20081211
  Transmission Date: 20090506
  Serious: Yes (Other)
  Sender: FDA-Public Use
  Company Number: SE-ABBOTT-08P-150-0491179-00

PATIENT
  Age: 45 Year
  Sex: Female

DRUGS (4)
  1. HUMIRA [Suspect]
     Indication: RHEUMATOID ARTHRITIS
     Route: 058
     Dates: start: 20080301, end: 20081120
  2. BUPROPION HYDROCHLORIDE [Suspect]
     Indication: EX-TOBACCO USER
     Dosage: PROLONGED RELEASE TABLET
     Route: 048
     Dates: start: 20081028, end: 20081124
  3. METHOTREXATE [Concomitant]
     Indication: DRUG USE FOR UNKNOWN INDICATION
  4. FOLIC ACID [Concomitant]
     Indication: DRUG USE FOR UNKNOWN INDICATION

REACTIONS (2)
  - ANGIOEDEMA [None]
  - URTICARIA [None]
